FAERS Safety Report 9626965 (Version 1)
Quarter: 2013Q4

REPORT INFORMATION
  Report Type: Spontaneous
  Country: US (occurrence: None)
  Receive Date: 20131011
  Receipt Date: 20131011
  Transmission Date: 20140711
  Serious: Yes (Hospitalization)
  Sender: FDA-Public Use
  Company Number: 2011US-41662

PATIENT
  Age: 47 Year
  Sex: Female

DRUGS (2)
  1. IBUPROFEN [Suspect]
     Indication: PRODUCT USED FOR UNKNOWN INDICATION
  2. CALCIUM CARBONATE [Suspect]
     Indication: DYSPEPSIA
     Route: 048

REACTIONS (13)
  - Milk-alkali syndrome [None]
  - Renal failure acute [None]
  - Hypercalcaemia [None]
  - Dehydration [None]
  - Vaginal haemorrhage [None]
  - Weight decreased [None]
  - Somnolence [None]
  - Blood pressure increased [None]
  - Haemoglobin decreased [None]
  - Lung infiltration [None]
  - Gastritis erosive [None]
  - Prothrombin time prolonged [None]
  - Bacillus test positive [None]
